FAERS Safety Report 12216977 (Version 2)
Quarter: 2016Q4

REPORT INFORMATION
  Report Type: Report from Study
  Country: US (occurrence: US)
  Receive Date: 20160329
  Receipt Date: 20161203
  Transmission Date: 20170207
  Serious: No
  Sender: FDA-Public Use
  Company Number: PHEH2016US007222

PATIENT
  Age: 16 Year
  Sex: Female

DRUGS (2)
  1. AFINITOR [Suspect]
     Active Substance: EVEROLIMUS
     Indication: ANGIOMYOLIPOMA
     Dosage: 5 MG, QD
     Route: 048
     Dates: start: 20151126
  2. AFINITOR [Suspect]
     Active Substance: EVEROLIMUS
     Dosage: 7.5 MG, (AITRNATING WITH 5 MG E/O DAY)
     Route: 048
     Dates: start: 20160320

REACTIONS (2)
  - Wrong technique in product usage process [Unknown]
  - Drug level decreased [Unknown]

NARRATIVE: CASE EVENT DATE: 20160318
